FAERS Safety Report 18761822 (Version 1)
Quarter: 2021Q1

REPORT INFORMATION
  Report Type: Report from Study
  Country: NL (occurrence: NL)
  Receive Date: 20210120
  Receipt Date: 20210120
  Transmission Date: 20210419
  Serious: Yes (Death)
  Sender: FDA-Public Use
  Company Number: NL-PFIZER INC-2021045859

PATIENT
  Sex: Female

DRUGS (7)
  1. CYCLOPHOSPHAMIDE. [Suspect]
     Active Substance: CYCLOPHOSPHAMIDE
     Dosage: 6000 MG/M2, CYCLIC
  2. EPIRUBICIN [Suspect]
     Active Substance: EPIRUBICIN
     Indication: BREAST CANCER STAGE III
     Dosage: 90 MG/M2, CYCLIC
  3. CYCLOPHOSPHAMIDE. [Suspect]
     Active Substance: CYCLOPHOSPHAMIDE
     Indication: BREAST CANCER STAGE III
     Dosage: 500 MG/M2, CYCLIC
  4. TAMOXIFEN [Concomitant]
     Active Substance: TAMOXIFEN
  5. THIOTEPA. [Suspect]
     Active Substance: THIOTEPA
     Indication: BREAST CANCER STAGE III
     Dosage: 480 MG/M2, CYCLIC
  6. CARBOPLATIN. [Suspect]
     Active Substance: CARBOPLATIN
     Indication: BREAST CANCER STAGE III
     Dosage: 1600 MG/M2, CYCLIC
  7. FLUOROURACIL. [Suspect]
     Active Substance: FLUOROURACIL
     Indication: BREAST CANCER STAGE III
     Dosage: 500 MG/M2, CYCLIC

REACTIONS (1)
  - Death [Fatal]
